FAERS Safety Report 5834030-X (Version None)
Quarter: 2008Q3

REPORT INFORMATION
  Report Type: 
  Country: None (occurrence: None)
  Receive Date: 20080805
  Receipt Date: 20080723
  Transmission Date: 20090109
  Serious: Yes (Other)
  Sender: FDA-Public Use
  Company Number: GB-MERCK-0806GBR00080

PATIENT
  Age: 20 Year
  Sex: Female

DRUGS (4)
  1. TIMOPTIC [Suspect]
     Indication: INTRAOCULAR PRESSURE INCREASED
     Route: 047
  2. BRIMONIDINE TARTRATE [Suspect]
     Route: 047
  3. LATANOPROST [Suspect]
     Route: 047
  4. INSULIN [Concomitant]
     Route: 065

REACTIONS (4)
  - DRUG INEFFECTIVE [None]
  - IRIS ADHESIONS [None]
  - RETINAL TEAR [None]
  - VITREOUS HAEMORRHAGE [None]
